FAERS Safety Report 15387494 (Version 3)
Quarter: 2018Q4

REPORT INFORMATION
  Report Type: Report from Study
  Country: JP (occurrence: JP)
  Receive Date: 20180914
  Receipt Date: 20181119
  Transmission Date: 20190204
  Serious: Yes (Hospitalization, Other)
  Sender: FDA-Public Use
  Company Number: JP-SAKK-2018SA252662AA

PATIENT
  Age: 80 Year
  Sex: Female
  Weight: 43 kg

DRUGS (7)
  1. KYTRIL [Concomitant]
     Active Substance: GRANISETRON HYDROCHLORIDE
     Indication: PROPHYLAXIS OF NAUSEA AND VOMITING
     Dosage: 2 MG, QD
     Route: 048
     Dates: start: 20171027, end: 20171027
  2. SODIUM PICOSULFATE [Concomitant]
     Active Substance: SODIUM PICOSULFATE
     Indication: DYSCHEZIA
     Dosage: 1 ML, QD
     Route: 048
     Dates: start: 20171028, end: 20171029
  3. THYRADIN S [Concomitant]
     Active Substance: LEVOTHYROXINE SODIUM
     Indication: PRODUCT USED FOR UNKNOWN INDICATION
     Dosage: 75 UG, QD
     Route: 048
  4. SODIUM IODIDE I 131 [Concomitant]
     Active Substance: SODIUM IODIDE I-131
     Indication: PRODUCT USED FOR UNKNOWN INDICATION
     Dosage: 30MCI
     Route: 065
     Dates: start: 20171027
  5. THYROTROPIN ALFA [Suspect]
     Active Substance: THYROTROPIN ALFA
     Indication: RADIOACTIVE IODINE THERAPY
     Dosage: 0.9 MG, QD
     Route: 030
     Dates: start: 20171025, end: 20171026
  6. EDIROL [Concomitant]
     Active Substance: ELDECALCITOL
     Indication: PROPHYLAXIS
     Dosage: 0.75 UG, QD
     Route: 048
  7. CALCIUM LACTATE [Concomitant]
     Active Substance: CALCIUM LACTATE
     Indication: PROPHYLAXIS
     Dosage: 1000 MG, QD
     Route: 048

REACTIONS (8)
  - Blood pressure decreased [Recovering/Resolving]
  - Ileus [Recovering/Resolving]
  - Pallor [Recovering/Resolving]
  - Constipation [Recovering/Resolving]
  - Cold sweat [Recovering/Resolving]
  - Vomiting [Recovering/Resolving]
  - Depressed level of consciousness [Recovering/Resolving]
  - Abdominal pain [Recovering/Resolving]

NARRATIVE: CASE EVENT DATE: 20171029
